FAERS Safety Report 4399251-4 (Version None)
Quarter: 2004Q3

REPORT INFORMATION
  Report Type: 
  Country: None (occurrence: None)
  Receive Date: 20040712
  Receipt Date: 20040630
  Transmission Date: 20050211
  Serious: Yes (Life-Threatening, Disabling)
  Sender: FDA-Public Use
  Company Number: 04H-163-0265454-00

PATIENT
  Sex: Female

DRUGS (1)
  1. MAGNESIUM SULFATE [Suspect]
     Indication: PREMATURE LABOUR
     Dosage: SEE IMAGE
     Route: 042

REACTIONS (8)
  - ACCIDENTAL OVERDOSE [None]
  - APALLIC SYNDROME [None]
  - COMA [None]
  - DRUG EXPOSURE DURING PREGNANCY [None]
  - MEDICATION ERROR [None]
  - PRECIPITATE LABOUR [None]
  - RESPIRATORY ARREST [None]
  - THERAPY NON-RESPONDER [None]
